FAERS Safety Report 21663871 (Version 1)
Quarter: 2022Q4

REPORT INFORMATION
  Report Type: Spontaneous
  Country: US (occurrence: US)
  Receive Date: 20221130
  Receipt Date: 20221130
  Transmission Date: 20230113
  Serious: Yes (Hospitalization, Other)
  Sender: FDA-Public Use
  Company Number: US-HALEON-USCH2022GSK046708

PATIENT

DRUGS (7)
  1. IBUPROFEN [Suspect]
     Active Substance: IBUPROFEN
     Indication: Pain
     Dosage: 1200 MG, QD
     Route: 048
  2. HERBALS [Concomitant]
     Active Substance: HERBALS
     Indication: Supplementation therapy
     Dosage: 2100 MG, QD
  3. TARAXACUM OFFICINALE ROOT [Concomitant]
     Active Substance: TARAXACUM OFFICINALE ROOT
     Indication: Supplementation therapy
     Dosage: UNK, QD
  4. VITAMIN E [Concomitant]
     Active Substance: .ALPHA.-TOCOPHEROL
     Indication: Supplementation therapy
     Dosage: UNK, QD
  5. IRON [Concomitant]
     Active Substance: IRON
     Indication: Iron deficiency anaemia
     Dosage: UNK, QD
  6. VITAMIN B12 [Concomitant]
     Active Substance: CYANOCOBALAMIN
     Indication: Iron deficiency anaemia
     Dosage: UNK, QD
  7. FOLATE SODIUM [Concomitant]
     Active Substance: FOLATE SODIUM
     Indication: Iron deficiency anaemia
     Dosage: UNK, QD

REACTIONS (9)
  - Abdominal pain [Unknown]
  - Jaundice [Unknown]
  - Abdominal pain upper [Unknown]
  - Fatigue [Unknown]
  - Chromaturia [Unknown]
  - Ocular icterus [Unknown]
  - Oedema peripheral [Unknown]
  - Cholestasis [Unknown]
  - Hepatitis cholestatic [Unknown]
